FAERS Safety Report 4558776-9 (Version None)
Quarter: 2005Q1

REPORT INFORMATION
  Report Type: 
  Country: None (occurrence: None)
  Receive Date: 20050121
  Receipt Date: 20040317
  Transmission Date: 20050727
  Serious: Yes (Hospitalization, Other)
  Sender: FDA-Public Use
  Company Number: US-GLAXOSMITHKLINE-A0504444A

PATIENT
  Sex: Female

DRUGS (2)
  1. PAXIL [Suspect]
     Indication: DEPRESSION
     Route: 048
     Dates: start: 20010401, end: 20020101
  2. CELEXA [Suspect]
     Indication: DEPRESSION
     Route: 065
     Dates: start: 20020101, end: 20020401

REACTIONS (7)
  - DRUG WITHDRAWAL SYNDROME [None]
  - FLASHBACK [None]
  - HYPERVIGILANCE [None]
  - NIGHTMARE [None]
  - SELF INJURIOUS BEHAVIOUR [None]
  - SLEEP DISORDER [None]
  - SUICIDAL IDEATION [None]
